FAERS Safety Report 7849986-3 (Version None)
Quarter: 2011Q4

REPORT INFORMATION
  Report Type: 
  Country: None (occurrence: None)
  Receive Date: 20111025
  Receipt Date: 20111025
  Transmission Date: 20120403
  Serious: Yes (Other)
  Sender: FDA-Public Use
  Company Number: None

PATIENT
  Age: 77 Year
  Sex: Male
  Weight: 50.6 kg

DRUGS (1)
  1. NAFCILLIN [Suspect]
     Indication: ENDOCARDITIS STAPHYLOCOCCAL
     Dosage: 2GM OTHER IV
     Route: 042
     Dates: start: 20110822, end: 20110915

REACTIONS (10)
  - SEPSIS [None]
  - HAEMOLYTIC ANAEMIA [None]
  - EYE DISORDER [None]
  - RENAL TUBULAR NECROSIS [None]
  - RENAL FAILURE ACUTE [None]
  - EXOPHTHALMOS [None]
  - HYPOKALAEMIA [None]
  - HYPOVOLAEMIA [None]
  - RESPIRATORY FAILURE [None]
  - URINARY CASTS [None]
